FAERS Safety Report 12626272 (Version 2)
Quarter: 2017Q1

REPORT INFORMATION
  Report Type: Report from Study
  Country: PE (occurrence: PE)
  Receive Date: 20160805
  Receipt Date: 20170117
  Transmission Date: 20170428
  Serious: Yes (Hospitalization, Other)
  Sender: FDA-Public Use
  Company Number: PE-009507513-1608PER001369

PATIENT
  Age: 73 Year
  Sex: Female

DRUGS (2)
  1. SITAGLIPTIN PHOSPHATE [Suspect]
     Active Substance: SITAGLIPTIN PHOSPHATE
     Indication: DIABETES MELLITUS
     Dosage: 100 MG TABLET,1 TABLET, QD
     Route: 048
     Dates: start: 2014, end: 201612
  2. SITAGLIPTIN PHOSPHATE [Suspect]
     Active Substance: SITAGLIPTIN PHOSPHATE
     Dosage: 100 MG, QD
     Dates: start: 20170101

REACTIONS (7)
  - Agitation [Recovering/Resolving]
  - Cardiac operation [Recovered/Resolved]
  - Gait disturbance [Unknown]
  - Stent placement [Recovering/Resolving]
  - Arterial occlusive disease [Unknown]
  - Blood glucose decreased [Unknown]
  - Fatigue [Recovering/Resolving]

NARRATIVE: CASE EVENT DATE: 201611
